FAERS Safety Report 9259873 (Version 3)
Quarter: 2014Q1

REPORT INFORMATION
  Report Type: Spontaneous
  Country: US (occurrence: US)
  Receive Date: 20130429
  Receipt Date: 20140115
  Transmission Date: 20141002
  Serious: Yes (Disabling)
  Sender: FDA-Public Use
  Company Number: US-ASTRAZENECA-2013SE27554

PATIENT
  Age: 613 Month
  Sex: Male

DRUGS (12)
  1. NEXIUM [Suspect]
     Indication: DYSPEPSIA
     Route: 048
  2. NEXIUM [Suspect]
     Indication: DYSPEPSIA
     Dosage: TWO TIMES A DAY
     Route: 048
     Dates: start: 200605
  3. NEXIUM [Suspect]
     Indication: DYSPEPSIA
     Route: 048
     Dates: start: 20090830
  4. NEXIUM [Suspect]
     Indication: DYSPEPSIA
     Route: 048
     Dates: start: 20110316
  5. PRILOSEC OTC [Suspect]
     Dosage: 20 MG PO BEFORE BREAKFAST
     Route: 048
     Dates: start: 20090831, end: 20090929
  6. PROTONIX [Concomitant]
     Dosage: THREE TIMES DAILY
  7. PREVACID [Concomitant]
     Dosage: TWO TIMES DAILY
  8. ZANTAC RANITIDINE [Concomitant]
     Dosage: TWO TIMES DAILY
  9. METOPROLOL [Concomitant]
  10. LISINOPRIL [Concomitant]
  11. HYDROCONEDO [Concomitant]
     Dosage: 10/500 FOUR TIMES DAY
  12. GLYBURIDE [Concomitant]
     Dates: start: 20110316

REACTIONS (11)
  - Intervertebral disc degeneration [Unknown]
  - Intervertebral disc protrusion [Unknown]
  - Osteoporosis [Unknown]
  - Bone disorder [Unknown]
  - Multiple fractures [Unknown]
  - Back disorder [Unknown]
  - Arthropathy [Unknown]
  - Foot fracture [Unknown]
  - Hand fracture [Unknown]
  - Diabetes mellitus [Unknown]
  - Drug hypersensitivity [Unknown]
